FAERS Safety Report 7645216-6 (Version None)
Quarter: 2011Q3

REPORT INFORMATION
  Report Type: 
  Country: None (occurrence: None)
  Receive Date: 20110725
  Receipt Date: 20110711
  Transmission Date: 20111222
  Serious: Yes (Other)
  Sender: FDA-Public Use
  Company Number: DE-GDP-10408193

PATIENT
  Sex: Male
  Weight: 110 kg

DRUGS (5)
  1. NEBIVOLOL HCL [Concomitant]
  2. METVIXIA [Suspect]
     Indication: ACANTHOMA
     Dosage: (6 DF 1X/WEEK TOPICAL), (1 DF TOPICAL)
     Route: 061
     Dates: start: 20090107, end: 20090206
  3. METVIXIA [Suspect]
     Indication: BOWEN'S DISEASE
     Dosage: (6 DF 1X/WEEK TOPICAL), (1 DF TOPICAL)
     Route: 061
     Dates: start: 20090107, end: 20090206
  4. METVIXIA [Suspect]
     Indication: ACANTHOMA
     Dosage: (6 DF 1X/WEEK TOPICAL), (1 DF TOPICAL)
     Route: 061
     Dates: start: 20100430, end: 20100430
  5. METVIXIA [Suspect]
     Indication: BOWEN'S DISEASE
     Dosage: (6 DF 1X/WEEK TOPICAL), (1 DF TOPICAL)
     Route: 061
     Dates: start: 20100430, end: 20100430

REACTIONS (3)
  - LICHENOID KERATOSIS [None]
  - DERMATITIS CONTACT [None]
  - DERMATITIS ALLERGIC [None]
